FAERS Safety Report 9522460 (Version 2)
Quarter: 2014Q1

REPORT INFORMATION
  Report Type: Spontaneous
  Country: US (occurrence: None)
  Receive Date: 20130305
  Receipt Date: 20140306
  Transmission Date: 20141002
  Serious: Yes (Hospitalization)
  Sender: FDA-Public Use
  Company Number: 163-21880-12063609

PATIENT
  Age: 54 Year
  Sex: Female

DRUGS (12)
  1. REVLIMID [Suspect]
     Indication: PLASMA CELL MYELOMA
     Dosage: 15 MG, 21 IN 28 D, PO
     Route: 048
     Dates: start: 20120601, end: 2012
  2. ASPIRIN (CETYLSALICYLIC ACID) (UNKNOWN) [Concomitant]
  3. ZYRTEC (CETRIZINE HYDROCHLORIDE) (UNKNOWN) [Concomitant]
  4. DEXAMETHASONE (DEXAMETHASONE) (UNKNOWN) [Concomitant]
  5. ZOMETA (ZOLEDRONIC ACID) (UNKNOWN) [Concomitant]
  6. ACYCLOVIR (ACICLOVIR) (UNKNOWN) [Concomitant]
  7. LORCET (VICODIN) (UNKNOWN) [Concomitant]
  8. ARMOUR THYROID (THYROID) (UNKNOWN) [Concomitant]
  9. MIRALAX (MACROGOL) (UNKNOWN) [Concomitant]
  10. OXYCOTIN (OXYCODONE HYDROCHLORIDE) (UNKNOWN) [Concomitant]
  11. MELATONIN (MELATONIN) (UNKNOWN) [Concomitant]
  12. VELCADE (BORTEZOMIB) (UNKNOWN)? [Concomitant]

REACTIONS (3)
  - Thrombosis [None]
  - Local swelling [None]
  - Pulmonary embolism [None]
